FAERS Safety Report 24673800 (Version 1)
Quarter: 2024Q4

REPORT INFORMATION
  Report Type: Spontaneous
  Country: PL (occurrence: PL)
  Receive Date: 20241128
  Receipt Date: 20241128
  Transmission Date: 20250115
  Serious: Yes (Hospitalization, Other)
  Sender: CELLTRION
  Company Number: PL-CELLTRION INC.-2024PL028775

PATIENT

DRUGS (1)
  1. ADALIMUMAB [Suspect]
     Active Substance: ADALIMUMAB
     Indication: Psoriasis
     Dosage: 12TH WEEK OF TREATMENT

REACTIONS (2)
  - Glaucomatocyclitic crises [Recovering/Resolving]
  - Meningitis aseptic [Recovering/Resolving]
